FAERS Safety Report 7691923-9 (Version None)
Quarter: 2011Q3

REPORT INFORMATION
  Report Type: 
  Country: None (occurrence: None)
  Receive Date: 20110818
  Receipt Date: 20110811
  Transmission Date: 20111222
  Serious: Yes (Hospitalization)
  Sender: FDA-Public Use
  Company Number: US-AMGEN-USASP2011041145

PATIENT
  Age: 82 Year
  Sex: Male

DRUGS (9)
  1. RAPAFLO [Concomitant]
  2. FENTANYL [Concomitant]
  3. AMOXICILLIN [Concomitant]
  4. CASODEX [Concomitant]
  5. MORPHINE [Concomitant]
  6. CEFEPIME [Concomitant]
  7. XGEVA [Suspect]
     Indication: METASTASES TO BONE
     Dosage: 120 MG, Q4WK
  8. FLAGYL [Concomitant]
  9. TYLENOL (CAPLET) [Concomitant]

REACTIONS (3)
  - ABDOMINAL PAIN [None]
  - COLITIS [None]
  - HYPOCALCAEMIA [None]
